FAERS Safety Report 13786913 (Version 1)
Quarter: 2017Q3

REPORT INFORMATION
  Report Type: Spontaneous
  Country: US (occurrence: US)
  Receive Date: 20170725
  Receipt Date: 20170725
  Transmission Date: 20171127
  Serious: No
  Sender: FDA-Public Use
  Company Number: US-TEVA-728705ACC

PATIENT
  Sex: Female

DRUGS (2)
  1. OXYCODONE [Suspect]
     Active Substance: OXYCODONE
  2. BACLOFEN. [Suspect]
     Active Substance: BACLOFEN
     Route: 065
     Dates: start: 2014

REACTIONS (1)
  - Rash [Unknown]

NARRATIVE: CASE EVENT DATE: 2014
